FAERS Safety Report 13072772 (Version 1)
Quarter: 2016Q4

REPORT INFORMATION
  Report Type: Spontaneous
  Country: US (occurrence: US)
  Receive Date: 20161229
  Receipt Date: 20161229
  Transmission Date: 20170207
  Serious: No
  Sender: FDA-Public Use
  Company Number: US-SA-2016SA114033

PATIENT
  Age: 72 Year
  Sex: Female

DRUGS (1)
  1. TAXOTERE [Suspect]
     Active Substance: DOCETAXEL
     Route: 065
     Dates: start: 201306

REACTIONS (5)
  - Alopecia [Unknown]
  - Cyst [Unknown]
  - Bone pain [Unknown]
  - Fatigue [Unknown]
  - Arthralgia [Unknown]
